FAERS Safety Report 16494701 (Version 1)
Quarter: 2019Q2

REPORT INFORMATION
  Report Type: Spontaneous
  Country: FR (occurrence: FR)
  Receive Date: 20190628
  Receipt Date: 20190628
  Transmission Date: 20190711
  Serious: Yes (Hospitalization)
  Sender: FDA-Public Use
  Company Number: FR-SUN PHARMACEUTICAL INDUSTRIES LTD-2019RR-211857

PATIENT
  Age: 62 Year
  Weight: 80 kg

DRUGS (1)
  1. PARACETAMOL [Suspect]
     Active Substance: ACETAMINOPHEN
     Indication: TOXICITY TO VARIOUS AGENTS
     Dosage: 32 DOSAGE FORM
     Route: 048
     Dates: start: 20180801

REACTIONS (5)
  - Chest pain [Recovered/Resolved]
  - Toxicity to various agents [Recovered/Resolved]
  - Coagulation factor V level decreased [Recovered/Resolved]
  - Hepatocellular injury [Recovering/Resolving]
  - Prothrombin time shortened [Recovered/Resolved]

NARRATIVE: CASE EVENT DATE: 20180801
